FAERS Safety Report 24703108 (Version 1)
Quarter: 2024Q4

REPORT INFORMATION
  Report Type: Spontaneous
  Country: IN (occurrence: IN)
  Receive Date: 20241205
  Receipt Date: 20241205
  Transmission Date: 20250115
  Serious: Yes (Other)
  Sender: PFIZER
  Company Number: IN-PFIZER INC-202200483883

PATIENT
  Age: 43 Year
  Sex: Female

DRUGS (2)
  1. PALBOCICLIB [Suspect]
     Active Substance: PALBOCICLIB
     Indication: Breast cancer metastatic
     Dosage: 125 MG, CYCLIC (ONCE DAILY FOR 21 DAYS)
     Route: 048
     Dates: start: 20170628
  2. LETROZOLE [Concomitant]
     Active Substance: LETROZOLE
     Dosage: 2.5, 1X/DAY X 1 MONTH

REACTIONS (9)
  - Respiratory distress [Unknown]
  - Neoplasm progression [Unknown]
  - Asthenia [Unknown]
  - Pain [Not Recovered/Not Resolved]
  - Decreased appetite [Recovering/Resolving]
  - Paraesthesia [Unknown]
  - Abdominal pain [Unknown]
  - Cough [Recovering/Resolving]
  - Eastern Cooperative Oncology Group performance status abnormal [Unknown]
